FAERS Safety Report 8952055 (Version 1)
Quarter: 2012Q4

REPORT INFORMATION
  Report Type: 
  Country: US (occurrence: US)
  Receive Date: 20121204
  Receipt Date: 20121204
  Transmission Date: 20130627
  Serious: No
  Sender: FDA-Public Use
  Company Number: US-AMGEN-USASP2012070858

PATIENT
  Sex: Female

DRUGS (1)
  1. ENBREL [Suspect]
     Indication: PSORIASIS
     Dosage: 100 mg, qwk

REACTIONS (5)
  - Rash erythematous [Unknown]
  - Headache [Unknown]
  - Sinus congestion [Unknown]
  - Tension [Unknown]
  - Psoriasis [Unknown]
